FAERS Safety Report 18103295 (Version 4)
Quarter: 2020Q4

REPORT INFORMATION
  Report Type: Spontaneous
  Country: US (occurrence: US)
  Receive Date: 20200803
  Receipt Date: 20201202
  Transmission Date: 20210113
  Serious: Yes (Other)
  Sender: FDA-Public Use
  Company Number: US-PFIZER INC-2020290108

PATIENT
  Age: 70 Year
  Sex: Female

DRUGS (1)
  1. IBRANCE [Suspect]
     Active Substance: PALBOCICLIB
     Indication: BREAST CANCER FEMALE
     Dosage: 100 MG
     Dates: end: 20201107

REACTIONS (12)
  - Arthralgia [Unknown]
  - Insomnia [Unknown]
  - Somnolence [Unknown]
  - Pruritus [Unknown]
  - Fatigue [Unknown]
  - Device adhesion issue [Not Recovered/Not Resolved]
  - Middle insomnia [Unknown]
  - Infection [Unknown]
  - Impaired healing [Not Recovered/Not Resolved]
  - Urticaria [Unknown]
  - Peripheral swelling [Unknown]
  - Pain in extremity [Unknown]

NARRATIVE: CASE EVENT DATE: 201910
